FAERS Safety Report 11047213 (Version 3)
Quarter: 2015Q2

REPORT INFORMATION
  Report Type: Report from Study
  Country: DE (occurrence: DE)
  Receive Date: 20150420
  Receipt Date: 20150514
  Transmission Date: 20150821
  Serious: Yes (Hospitalization)
  Sender: FDA-Public Use
  Company Number: DE-PFIZER INC-2015121775

PATIENT
  Age: 45 Year
  Sex: Female
  Weight: 71 kg

DRUGS (9)
  1. ETOPOSIDE. [Suspect]
     Active Substance: ETOPOSIDE
     Indication: ACUTE MYELOID LEUKAEMIA
     Dosage: 180 MG,DAILY (CYCLIC)
     Dates: start: 20150120, end: 20150122
  2. ATRA [Suspect]
     Active Substance: TRETINOIN
     Indication: ACUTE MYELOID LEUKAEMIA
     Dosage: 80 MG, DAILY (CYCLIC)
     Dates: start: 20150125, end: 20150127
  3. PEGFILGRASTIM [Suspect]
     Active Substance: PEGFILGRASTIM
     Dosage: 30 (UNKNOWN UNITS)
     Dates: start: 20150306
  4. IDARUBICIN [Suspect]
     Active Substance: IDARUBICIN
     Indication: ACUTE MYELOID LEUKAEMIA
     Dosage: 22 MG, DAILY (CYCLIC)
     Dates: start: 20150120, end: 20150124
  5. ATRA [Suspect]
     Active Substance: TRETINOIN
     Dosage: 27 MG, DAILY (CYCLIC)
     Dates: start: 20150128, end: 20150209
  6. PEGFILGRASTIM [Suspect]
     Active Substance: PEGFILGRASTIM
     Indication: ACUTE MYELOID LEUKAEMIA
     Dosage: 30 (UNKNOWN UNITS)
     Dates: start: 20150302
  7. GEMTUZUMAB OZOGAMICIN [Suspect]
     Active Substance: GEMTUZUMAB OZOGAMICIN
     Indication: ACUTE MYELOID LEUKAEMIA
     Dosage: 5.4 MG, DAILY (CYCLIC)
     Dates: start: 20150122, end: 20150122
  8. CYTARABINE. [Suspect]
     Active Substance: CYTARABINE
     Indication: ACUTE MYELOID LEUKAEMIA
     Dosage: 180 MG, DAILY (CYCLIC)
     Dates: start: 20150120, end: 20150126
  9. PEGFILGRASTIM [Suspect]
     Active Substance: PEGFILGRASTIM
     Dosage: 30 (UNKNOWN UNITS)
     Dates: start: 20150310

REACTIONS (1)
  - Bone marrow failure [Not Recovered/Not Resolved]

NARRATIVE: CASE EVENT DATE: 20150216
